FAERS Safety Report 4446002-0 (Version None)
Quarter: 2004Q3

REPORT INFORMATION
  Report Type: 
  Country: None (occurrence: None)
  Receive Date: 20040903
  Receipt Date: 20040824
  Transmission Date: 20050211
  Serious: Yes (Other)
  Sender: FDA-Public Use
  Company Number: 2004058994

PATIENT
  Age: 65 Year
  Sex: Male

DRUGS (5)
  1. DILANTIN [Suspect]
     Indication: CONVULSION
     Dosage: 360 MG (4 IN 1 D), ORAL
     Route: 048
  2. INSULIN [Concomitant]
  3. ERGOCALCIFEROL (ERGOCALCIFEROL) [Concomitant]
  4. RISEDRONATE SODIUM (RISEDRONATE SODIUM) [Concomitant]
  5. CALCIUM (CALCIUM) [Concomitant]

REACTIONS (1)
  - BONE DENSITY DECREASED [None]
